FAERS Safety Report 4359707-7 (Version None)
Quarter: 2004Q2

REPORT INFORMATION
  Report Type: 
  Country: None (occurrence: None)
  Receive Date: 20040513
  Receipt Date: 20040504
  Transmission Date: 20050107
  Serious: Yes (Hospitalization)
  Sender: FDA-Public Use
  Company Number: 2004212193FR

PATIENT
  Age: 33 Year
  Sex: Male
  Weight: 79 kg

DRUGS (2)
  1. SULFASALAZINE [Suspect]
     Indication: ARTHRITIS
     Dosage: 2 G/DAY, ORAL
     Route: 048
     Dates: start: 20031031, end: 20031128
  2. FELDENE [Suspect]
     Indication: ARTHRITIS
     Dosage: 20 MG/DAY, ORAL
     Route: 048
     Dates: start: 20031031, end: 20031128

REACTIONS (16)
  - APHTHOUS STOMATITIS [None]
  - CHLAMYDIAL INFECTION [None]
  - COUGH [None]
  - CYTOMEGALOVIRUS INFECTION [None]
  - DYSPHAGIA [None]
  - DYSPNOEA [None]
  - EPSTEIN-BARR VIRUS INFECTION [None]
  - HEPATITIS B ANTIBODY POSITIVE [None]
  - HEPATITIS CHOLESTATIC [None]
  - HYPERSENSITIVITY [None]
  - LYMPHADENOPATHY [None]
  - MUCOSAL INFLAMMATION [None]
  - PYREXIA [None]
  - RASH PRURITIC [None]
  - SPLENOMEGALY [None]
  - STREPTOCOCCAL INFECTION [None]
